FAERS Safety Report 23854207 (Version 1)
Quarter: 2024Q2

REPORT INFORMATION
  Report Type: Spontaneous
  Country: US (occurrence: US)
  Receive Date: 20240514
  Receipt Date: 20240514
  Transmission Date: 20240715
  Serious: No
  Sender: FDA-Public Use
  Company Number: US-SANDOZ-SDZ2024US016799

PATIENT

DRUGS (1)
  1. ALBUTEROL SULFATE [Suspect]
     Active Substance: ALBUTEROL SULFATE
     Indication: Product used for unknown indication
     Dosage: UNK, QID, 2 PUFFS BY MOUTH 4 TIMES A DAY, AEROSOL FOR ORAL INHALATION
     Route: 055

REACTIONS (2)
  - Product dose omission issue [Unknown]
  - Product dispensing issue [Unknown]
